FAERS Safety Report 19190687 (Version 1)
Quarter: 2021Q2

REPORT INFORMATION
  Report Type: Spontaneous
  Country: US (occurrence: US)
  Receive Date: 20210428
  Receipt Date: 20210428
  Transmission Date: 20210717
  Serious: Yes (Other)
  Sender: FDA-Public Use
  Company Number: NVSC2021US087038

PATIENT
  Sex: Male

DRUGS (2)
  1. CARBOPLATIN. [Suspect]
     Active Substance: CARBOPLATIN
     Indication: ASTROCYTOMA MALIGNANT
     Dosage: UNK
     Route: 065
     Dates: start: 20170216, end: 20190312
  2. VINCRISTINE [Suspect]
     Active Substance: VINCRISTINE
     Indication: ASTROCYTOMA MALIGNANT
     Dosage: UNK
     Route: 065
     Dates: start: 20170226, end: 20190312

REACTIONS (5)
  - Myelosuppression [Unknown]
  - Astrocytoma malignant [Unknown]
  - Malignant neoplasm progression [Unknown]
  - Product use in unapproved indication [Unknown]
  - Malabsorption [Unknown]

NARRATIVE: CASE EVENT DATE: 20190109
